FAERS Safety Report 21629613 (Version 1)
Quarter: 2022Q4

REPORT INFORMATION
  Report Type: Spontaneous
  Country: CN (occurrence: CN)
  Receive Date: 20221122
  Receipt Date: 20221122
  Transmission Date: 20230113
  Serious: Yes (Other)
  Sender: FDA-Public Use
  Company Number: CN-PFIZER INC-PV202200108305

PATIENT
  Age: 11 Year
  Sex: Male
  Weight: 27.2 kg

DRUGS (1)
  1. CYTARABINE [Suspect]
     Active Substance: CYTARABINE
     Indication: Leukaemia
     Dosage: 0.3 G, 1X/DAY
     Route: 037
     Dates: start: 20221030, end: 20221102

REACTIONS (1)
  - Blood fibrinogen decreased [Not Recovered/Not Resolved]

NARRATIVE: CASE EVENT DATE: 20221102
